FAERS Safety Report 4636104-8 (Version None)
Quarter: 2005Q2

REPORT INFORMATION
  Report Type: 
  Country: None (occurrence: None)
  Receive Date: 20050414
  Receipt Date: 20050414
  Transmission Date: 20051028
  Serious: No
  Sender: FDA-Public Use
  Company Number: None

PATIENT
  Sex: Male
  Weight: 81.8 kg

DRUGS (4)
  1. CISPLATIN [Suspect]
     Dosage: 100 MG/M2 ON DAYS 1 AND 22
     Dates: start: 20050331
  2. RADIATION THERAPY [Suspect]
  3. ATIVAN [Concomitant]
  4. COMPAZINE [Concomitant]

REACTIONS (2)
  - DEHYDRATION [None]
  - RENAL FAILURE ACUTE [None]
